FAERS Safety Report 9260995 (Version 1)
Quarter: 2013Q2

REPORT INFORMATION
  Report Type: Spontaneous
  Country: US (occurrence: US)
  Receive Date: 20130429
  Receipt Date: 20130429
  Transmission Date: 20140414
  Serious: No
  Sender: FDA-Public Use
  Company Number: US-AMGEN-USASP2012048909

PATIENT
  Age: 49 Year
  Sex: Female

DRUGS (10)
  1. SENSIPAR [Suspect]
     Indication: HYPERPARATHYROIDISM SECONDARY
     Dosage: UNK
     Route: 048
  2. SENSIPAR [Suspect]
     Dosage: 60 MG, UNK
     Dates: start: 20110118
  3. SENSIPAR [Suspect]
     Dosage: 90 MG, UNK
     Route: 048
     Dates: start: 20120227, end: 2012
  4. PHOSLO [Concomitant]
  5. PLETAL [Concomitant]
  6. PRAMIPEXOLE [Concomitant]
  7. ASPIRIN [Concomitant]
  8. RENAGEL                            /01459901/ [Concomitant]
  9. SIMVASTATIN [Concomitant]
  10. ZEMPLAR [Concomitant]

REACTIONS (1)
  - Phlebitis [Recovered/Resolved]
